FAERS Safety Report 25897512 (Version 1)
Quarter: 2025Q4

REPORT INFORMATION
  Report Type: Spontaneous
  Country: US (occurrence: US)
  Receive Date: 20251008
  Receipt Date: 20251008
  Transmission Date: 20260118
  Serious: No
  Sender: ROCHE
  Company Number: US-ROCHE-10000402805

PATIENT
  Sex: Female

DRUGS (1)
  1. COTELLIC [Suspect]
     Active Substance: COBIMETINIB FUMARATE
     Indication: Histiocytosis
     Dosage: FOR 21 DAY
     Route: 048
     Dates: start: 202508

REACTIONS (3)
  - Ill-defined disorder [Unknown]
  - Dyspnoea [Unknown]
  - Chest pain [Unknown]
